FAERS Safety Report 7350839-8 (Version None)
Quarter: 2011Q1

REPORT INFORMATION
  Report Type: 
  Country: None (occurrence: None)
  Receive Date: 20110314
  Receipt Date: 20110308
  Transmission Date: 20110831
  Serious: No
  Sender: FDA-Public Use
  Company Number: US-PFIZER INC-2011051093

PATIENT
  Sex: Male

DRUGS (6)
  1. NORVASC [Concomitant]
     Dosage: UNK
  2. LEVOTHYROXINE [Concomitant]
     Indication: HYPOTHYROIDISM
     Dosage: UNK
  3. LANTUS [Concomitant]
     Dosage: UNK
  4. ACTOS [Concomitant]
     Dosage: UNK
  5. SUTENT [Suspect]
     Indication: RENAL CANCER
     Dosage: 37.5 MG, DAILY
     Route: 048
     Dates: start: 20110304
  6. METFORMIN [Concomitant]
     Indication: DIABETES MELLITUS
     Dosage: UNK

REACTIONS (2)
  - ABDOMINAL DISTENSION [None]
  - DYSPNOEA [None]
